FAERS Safety Report 6780653-3 (Version None)
Quarter: 2010Q2

REPORT INFORMATION
  Report Type: 
  Country: None (occurrence: None)
  Receive Date: 20100621
  Receipt Date: 20100610
  Transmission Date: 20101027
  Serious: No
  Sender: FDA-Public Use
  Company Number: US-BIOGENIDEC-2010BI020101

PATIENT
  Age: 36 Year
  Sex: Female

DRUGS (3)
  1. TYSABRI [Suspect]
     Indication: MULTIPLE SCLEROSIS
     Route: 042
     Dates: start: 20100107
  2. UROXATRAL [Concomitant]
     Indication: MICTURITION URGENCY
     Dates: end: 20100101
  3. MUSCLE RELAXER [Concomitant]
     Indication: MICTURITION URGENCY

REACTIONS (2)
  - EPHELIDES [None]
  - MICTURITION URGENCY [None]
